FAERS Safety Report 5586297-3 (Version None)
Quarter: 2008Q1

REPORT INFORMATION
  Report Type: 
  Country: None (occurrence: None)
  Receive Date: 20080107
  Receipt Date: 20080107
  Transmission Date: 20080703
  Serious: No
  Sender: FDA-Public Use
  Company Number: None

PATIENT
  Age: 46 Year
  Sex: Female
  Weight: 53.0709 kg

DRUGS (1)
  1. CHANTIX [Suspect]

REACTIONS (14)
  - ABDOMINAL DISTENSION [None]
  - ABNORMAL DREAMS [None]
  - BACK PAIN [None]
  - ERUCTATION [None]
  - FLATULENCE [None]
  - GASTRIC DISORDER [None]
  - LETHARGY [None]
  - MICTURITION URGENCY [None]
  - MOOD ALTERED [None]
  - NAUSEA [None]
  - NIGHTMARE [None]
  - NOCTURIA [None]
  - SENSATION OF PRESSURE [None]
  - WEIGHT INCREASED [None]
